FAERS Safety Report 19224017 (Version 3)
Quarter: 2021Q2

REPORT INFORMATION
  Report Type: Spontaneous
  Country: US (occurrence: US)
  Receive Date: 20210505
  Receipt Date: 20210518
  Transmission Date: 20210717
  Serious: Yes (Life-Threatening, Other)
  Sender: FDA-Public Use
  Company Number: US-PFIZER INC-2021456257

PATIENT
  Age: 47 Year
  Sex: Female

DRUGS (3)
  1. BENADRYL [Suspect]
     Active Substance: DIPHENHYDRAMINE HYDROCHLORIDE
     Dosage: 25 MG, 2X/DAY [TWO TIMES PER DAY EVERY FOUR HOURS]
  2. BENADRYL [Suspect]
     Active Substance: DIPHENHYDRAMINE HYDROCHLORIDE
     Dosage: UNK UNK, AS NEEDED [EVERY 4?6 HOURS AS NEEDED]
  3. MEDROL [Suspect]
     Active Substance: METHYLPREDNISOLONE
     Dosage: UNK
     Route: 048

REACTIONS (22)
  - Swelling face [Unknown]
  - Swollen tongue [Unknown]
  - Hypoaesthesia [Unknown]
  - Lip disorder [Unknown]
  - Dehydration [Unknown]
  - Dry eye [Unknown]
  - Loss of consciousness [Unknown]
  - Paraesthesia [Unknown]
  - Flushing [Unknown]
  - Swelling [Unknown]
  - Dysphagia [Unknown]
  - Lip dry [Unknown]
  - Drug hypersensitivity [Unknown]
  - Eye swelling [Unknown]
  - Sinusitis [Unknown]
  - Pharyngeal swelling [Unknown]
  - Dyspnoea [Unknown]
  - Movement disorder [Unknown]
  - Headache [Unknown]
  - Gait disturbance [Unknown]
  - Muscle tightness [Unknown]
  - Coordination abnormal [Unknown]
